FAERS Safety Report 6728683-1 (Version None)
Quarter: 2010Q2

REPORT INFORMATION
  Report Type: 
  Country: None (occurrence: None)
  Receive Date: 20100517
  Receipt Date: 20100510
  Transmission Date: 20101027
  Serious: Yes (Death, Other)
  Sender: FDA-Public Use
  Company Number: PHHY2010VE30189

PATIENT
  Sex: Female

DRUGS (1)
  1. TASIGNA [Suspect]
     Indication: CHRONIC MYELOID LEUKAEMIA
     Dosage: 400 MG, UNK

REACTIONS (6)
  - CHRONIC MYELOID LEUKAEMIA [None]
  - DEATH [None]
  - DRUG RESISTANCE [None]
  - EATING DISORDER [None]
  - SPLENOMEGALY [None]
  - TREATMENT NONCOMPLIANCE [None]
